FAERS Safety Report 9967327 (Version 2)
Quarter: 2014Q1

REPORT INFORMATION
  Report Type: Report from Study
  Country: US (occurrence: US)
  Receive Date: 20140305
  Receipt Date: 20140305
  Transmission Date: 20141002
  Serious: No
  Sender: FDA-Public Use
  Company Number: US-ABBVIE-13P-163-1127013-00

PATIENT
  Age: 53 Year
  Sex: Female

DRUGS (9)
  1. HUMIRA [Suspect]
     Indication: PSORIASIS
     Route: 058
     Dates: start: 20130619, end: 20130619
  2. HUMIRA [Suspect]
     Route: 058
     Dates: start: 20130619
  3. VENLAFAXINE HYDROCHLORIDE [Concomitant]
     Indication: ANXIETY
     Dates: start: 2012
  4. VENLAFAXINE HYDROCHLORIDE [Concomitant]
     Indication: DEPRESSION
  5. ZOLPIDEM [Concomitant]
     Indication: INSOMNIA
  6. XANAX [Concomitant]
     Indication: ANXIETY
     Dates: start: 2003
  7. LISINOPRIL HCTZ [Concomitant]
     Indication: HYPERTENSION
     Dosage: 20/25MG
     Dates: start: 2012
  8. PRILOSEC [Concomitant]
     Indication: DYSPEPSIA
  9. CLONIDINE [Concomitant]
     Indication: HYPERTENSION
     Dosage: USE FOR BLOOD PRESSURE GREATER THAN 170/110
     Dates: start: 2013

REACTIONS (5)
  - Psoriasis [Not Recovered/Not Resolved]
  - Arthralgia [Not Recovered/Not Resolved]
  - Joint swelling [Not Recovered/Not Resolved]
  - Local swelling [Not Recovered/Not Resolved]
  - Pain in extremity [Not Recovered/Not Resolved]
